FAERS Safety Report 4292048-5 (Version None)
Quarter: 2004Q1

REPORT INFORMATION
  Report Type: 
  Country: None (occurrence: None)
  Receive Date: 20040211
  Receipt Date: 20030908
  Transmission Date: 20041129
  Serious: Yes (Death, Other)
  Sender: FDA-Public Use
  Company Number: WAES 0309GBR00213

PATIENT
  Age: 80 Year
  Sex: Male
  Weight: 85 kg

DRUGS (6)
  1. AMLODIPINE BESYLATE [Concomitant]
     Indication: HYPERTENSION
     Dates: start: 20020101
  2. ATENOLOL [Concomitant]
     Indication: HYPERTENSION
     Dates: start: 19930101
  3. BENSERAZIDE HYDROCHLORIDE AND LEVODOPA [Concomitant]
     Indication: PARKINSON'S DISEASE
     Dates: start: 20030101
  4. COZAAR [Suspect]
     Indication: HYPERTENSION
     Route: 048
     Dates: start: 20020710, end: 20030813
  5. PHENYTOIN [Concomitant]
     Indication: EPILEPSY
     Dates: start: 19910101
  6. SIMVASTATIN [Concomitant]
     Indication: HYPERCHOLESTEROLAEMIA
     Dates: start: 20030101

REACTIONS (3)
  - CONVULSION [None]
  - DEATH [None]
  - DRUG SCREEN NEGATIVE [None]
